FAERS Safety Report 7788141-2 (Version None)
Quarter: 2011Q3

REPORT INFORMATION
  Report Type: 
  Country: None (occurrence: None)
  Receive Date: 20110927
  Receipt Date: 20110914
  Transmission Date: 20111222
  Serious: Yes (Other)
  Sender: FDA-Public Use
  Company Number: AUR-APL-2011-04662

PATIENT
  Sex: Female

DRUGS (1)
  1. SIMVASTATIN [Suspect]
     Indication: PRODUCT USED FOR UNKNOWN INDICATION
     Dosage: 20 MG (20 MG,1 IN 1 D)
     Dates: start: 20110101

REACTIONS (2)
  - PRODUCT SUBSTITUTION ISSUE [None]
  - BLOOD CHOLESTEROL INCREASED [None]
